FAERS Safety Report 9009952 (Version 2)
Quarter: 2013Q1

REPORT INFORMATION
  Report Type: Spontaneous
  Country: US (occurrence: US)
  Receive Date: 20130110
  Receipt Date: 20130123
  Transmission Date: 20140127
  Serious: No
  Sender: FDA-Public Use
  Company Number: US-009507513-1301USA004409

PATIENT
  Age: 42 Year
  Sex: Male
  Weight: 71.2 kg

DRUGS (4)
  1. CLARITIN-D 24 HOUR [Suspect]
     Indication: NASOPHARYNGITIS
     Dosage: 10 MG, QD
     Route: 048
     Dates: start: 20121218, end: 20121221
  2. CLARITIN-D 24 HOUR [Suspect]
     Indication: SINUS CONGESTION
  3. CLARITIN-D 24 HOUR [Suspect]
     Indication: RHINORRHOEA
  4. CLARITIN-D 24 HOUR [Suspect]
     Indication: MEDICAL OBSERVATION

REACTIONS (1)
  - Drug ineffective [Unknown]
